FAERS Safety Report 25586418 (Version 1)
Quarter: 2025Q3

REPORT INFORMATION
  Report Type: Report from Study
  Country: US (occurrence: US)
  Receive Date: 20250721
  Receipt Date: 20250721
  Transmission Date: 20251020
  Serious: Yes (Hospitalization, Other)
  Sender: ABBVIE
  Company Number: US-ABBVIE-6348368

PATIENT
  Age: 46 Year
  Sex: Male
  Weight: 97.522 kg

DRUGS (3)
  1. RINVOQ [Suspect]
     Active Substance: UPADACITINIB
     Indication: Colitis ulcerative
     Route: 048
     Dates: start: 20240801
  2. RINVOQ [Suspect]
     Active Substance: UPADACITINIB
     Indication: Colitis ulcerative
     Route: 048
     Dates: start: 2024
  3. OXYCODONE [Concomitant]
     Active Substance: OXYCODONE
     Indication: Pain

REACTIONS (19)
  - Inflammation [Recovered/Resolved]
  - Pain in extremity [Recovering/Resolving]
  - Pain [Recovered/Resolved]
  - Gait inability [Recovering/Resolving]
  - Rash [Recovered/Resolved]
  - Weight decreased [Not Recovered/Not Resolved]
  - Movement disorder [Recovered/Resolved]
  - Ulcer haemorrhage [Not Recovered/Not Resolved]
  - Musculoskeletal disorder [Recovering/Resolving]
  - Eye pain [Recovered/Resolved]
  - Arthralgia [Recovering/Resolving]
  - Wound complication [Recovered/Resolved]
  - Frequent bowel movements [Recovered/Resolved]
  - Dyspnoea [Recovered/Resolved]
  - Joint swelling [Recovered/Resolved]
  - Arthralgia [Recovered/Resolved]
  - Colitis ulcerative [Not Recovered/Not Resolved]
  - Therapeutic product effect decreased [Not Recovered/Not Resolved]
  - Joint stiffness [Recovering/Resolving]

NARRATIVE: CASE EVENT DATE: 20240101
